FAERS Safety Report 17013212 (Version 1)
Quarter: 2019Q4

REPORT INFORMATION
  Report Type: Spontaneous
  Country: US (occurrence: US)
  Receive Date: 20191002
  Receipt Date: 20191002
  Transmission Date: 20200122
  Serious: No
  Sender: FDA-Public Use
  Company Number: None

PATIENT
  Age: 60 Year
  Sex: Female

DRUGS (1)
  1. REMICADE [Suspect]
     Active Substance: INFLIXIMAB
     Route: 042

REACTIONS (3)
  - Erythema [None]
  - Cough [None]
  - Dyspnoea [None]

NARRATIVE: CASE EVENT DATE: 20191002
